FAERS Safety Report 4432490-2 (Version None)
Quarter: 2004Q3

REPORT INFORMATION
  Report Type: 
  Country: None (occurrence: None)
  Receive Date: 20040820
  Receipt Date: 20040804
  Transmission Date: 20050211
  Serious: Yes (Death)
  Sender: FDA-Public Use
  Company Number: 1644

PATIENT
  Age: 59 Year
  Sex: Female

DRUGS (1)
  1. AVINZA [Suspect]
     Dates: start: 20040101, end: 20040101

REACTIONS (1)
  - CARDIAC DISORDER [None]
